FAERS Safety Report 4738438-5 (Version None)
Quarter: 2005Q3

REPORT INFORMATION
  Report Type: 
  Country: None (occurrence: None)
  Receive Date: 20050803
  Receipt Date: 20050722
  Transmission Date: 20060218
  Serious: Yes (Hospitalization)
  Sender: FDA-Public Use
  Company Number: 2005106055

PATIENT
  Age: 73 Year
  Sex: Female

DRUGS (11)
  1. TRIFLUCAN (FLUCONAZOLE) [Suspect]
     Indication: ILL-DEFINED DISORDER
     Dosage: 800 MG (INTERVAL: EVERY DAY), INTRAVENOUS
     Route: 042
     Dates: start: 20050611, end: 20050612
  2. SPIRAMYCINE (SPIRAMYCIN) [Suspect]
     Indication: ILL-DEFINED DISORDER
     Dosage: 4.5 MU (INETRVAL: EVERY DAY),
     Dates: end: 20050610
  3. AMOXICILLIN AND CLAVULANATE POTASSIUM [Suspect]
     Indication: ILL-DEFINED DISORDER
     Dosage: 3 GRAM (INTERVAL: EVERY DAY), ORAL
     Route: 048
     Dates: end: 20050608
  4. ADRIAMYCIN PFS [Suspect]
     Indication: ILL-DEFINED DISORDER
     Dates: start: 20050601, end: 20050601
  5. CIPROFLOXACINE (CIPROFLOXACINE) [Suspect]
     Indication: ILL-DEFINED DISORDER
     Dosage: 1000 MG (500 MG, INTERVAL: EVERY DAY)
  6. CEFTRIAXONE [Suspect]
     Indication: ILL-DEFINED DISORDER
     Dosage: 1000 MG (1000 MG, INTERVAL: EVERY DAY), INTRAVENOUS
     Route: 042
     Dates: start: 20050608
  7. FUROSEMIDE [Concomitant]
  8. BROMAZEPAM (BROMAZEPAM) [Concomitant]
  9. RACECADOTRIL (ACETORPHAN) [Concomitant]
  10. DIOSMECTITE (ALUMINIUM MAGNESIUM SILICATE) [Concomitant]
  11. ENOXAPARINE SODIQUE (HEPARIN) [Concomitant]

REACTIONS (1)
  - ADVERSE EVENT [None]
